FAERS Safety Report 7818582-6 (Version None)
Quarter: 2011Q4

REPORT INFORMATION
  Report Type: 
  Country: None (occurrence: None)
  Receive Date: 20111017
  Receipt Date: 20111007
  Transmission Date: 20120403
  Serious: Yes (Hospitalization, Other)
  Sender: FDA-Public Use
  Company Number: US-ASTRAZENECA-2011SE60733

PATIENT
  Sex: Female

DRUGS (1)
  1. SEROQUEL [Suspect]
     Route: 048

REACTIONS (7)
  - INSOMNIA [None]
  - SCHIZOPHRENIA [None]
  - WITHDRAWAL SYNDROME [None]
  - DRUG DOSE OMISSION [None]
  - BIPOLAR DISORDER [None]
  - VOMITING [None]
  - NAUSEA [None]
